FAERS Safety Report 12290234 (Version 3)
Quarter: 2016Q2

REPORT INFORMATION
  Report Type: Spontaneous
  Country: TW (occurrence: TW)
  Receive Date: 20160421
  Receipt Date: 20160519
  Transmission Date: 20160815
  Serious: Yes (Hospitalization)
  Sender: FDA-Public Use
  Company Number: TW-PFIZER INC-2016209788

PATIENT
  Age: 33 Year
  Sex: Male

DRUGS (1)
  1. BENEFIX [Suspect]
     Active Substance: COAGULATION FACTOR IX RECOMBINANT HUMAN\ISOPROPYL ALCOHOL
     Indication: FACTOR IX DEFICIENCY
     Dosage: 4000 IU, ONCE PER WEEK
     Route: 042

REACTIONS (6)
  - Headache [Recovered/Resolved]
  - Concussion [Recovered/Resolved]
  - Epilepsy [Recovered/Resolved]
  - Fall [Recovered/Resolved]
  - Somnolence [Recovered/Resolved]
  - Dizziness [Recovered/Resolved]

NARRATIVE: CASE EVENT DATE: 20160411
